FAERS Safety Report 6832362-X (Version None)
Quarter: 2010Q3

REPORT INFORMATION
  Report Type: 
  Country: None (occurrence: None)
  Receive Date: 20100712
  Receipt Date: 20100701
  Transmission Date: 20110219
  Serious: Yes (Other)
  Sender: FDA-Public Use
  Company Number: US-PFIZER INC-2009190355

PATIENT
  Sex: Female

DRUGS (3)
  1. CHANTIX [Suspect]
     Indication: SMOKING CESSATION THERAPY
     Dosage: UNK MG, UNK
     Route: 048
  2. BUSPAR [Concomitant]
     Indication: DEPRESSION
     Dosage: UNK
     Route: 048
  3. PROZAC [Concomitant]
     Indication: DEPRESSION
     Dosage: UNK
     Route: 048

REACTIONS (8)
  - ABNORMAL DREAMS [None]
  - ANGER [None]
  - ANXIETY DISORDER [None]
  - DEPRESSION [None]
  - MEMORY IMPAIRMENT [None]
  - NERVOUSNESS [None]
  - SOCIAL PHOBIA [None]
  - TOBACCO WITHDRAWAL SYMPTOMS [None]
